FAERS Safety Report 11185754 (Version 1)
Quarter: 2015Q2

REPORT INFORMATION
  Report Type: Spontaneous
  Country: TR (occurrence: TR)
  Receive Date: 20150612
  Receipt Date: 20150612
  Transmission Date: 20150821
  Serious: Yes (Other)
  Sender: FDA-Public Use
  Company Number: TR-PERRIGO-15TR005786

PATIENT
  Age: 15 Year
  Sex: Female

DRUGS (2)
  1. NAPROXEN SODIUM 220 MG 368 [Suspect]
     Active Substance: NAPROXEN SODIUM
     Indication: DRUG PROVOCATION TEST
     Dosage: UNK
     Route: 048
  2. FLURBIPROFEN. [Suspect]
     Active Substance: FLURBIPROFEN
     Indication: DRUG PROVOCATION TEST
     Dosage: UNK
     Route: 048

REACTIONS (3)
  - Angioedema [Recovered/Resolved]
  - Cough [Recovered/Resolved]
  - Nasal congestion [Recovered/Resolved]
